FAERS Safety Report 7048780-3 (Version None)
Quarter: 2010Q4

REPORT INFORMATION
  Report Type: 
  Country: None (occurrence: None)
  Receive Date: 20101018
  Receipt Date: 20101005
  Transmission Date: 20110411
  Serious: Yes (Hospitalization)
  Sender: FDA-Public Use
  Company Number: FR-TEVA-251037ISR

PATIENT
  Sex: Female

DRUGS (14)
  1. VINCRISTINE [Suspect]
     Indication: NON-HODGKIN'S LYMPHOMA
     Route: 042
     Dates: start: 20100816, end: 20100816
  2. OFATUMUMAB [Suspect]
     Indication: NON-HODGKIN'S LYMPHOMA
     Route: 042
     Dates: start: 20100816, end: 20100816
  3. DOXORUBICIN HCL [Suspect]
     Indication: NON-HODGKIN'S LYMPHOMA
     Route: 042
     Dates: start: 20100816, end: 20100816
  4. CYCLOPHOSPHAMIDE [Suspect]
     Indication: NON-HODGKIN'S LYMPHOMA
     Route: 042
     Dates: start: 20100816, end: 20100816
  5. METHYLPREDNISOLONE [Suspect]
     Indication: NON-HODGKIN'S LYMPHOMA
     Route: 042
     Dates: start: 20100816, end: 20100816
  6. PREDNISOLONE [Suspect]
     Indication: NON-HODGKIN'S LYMPHOMA
     Route: 048
     Dates: start: 20100817, end: 20100820
  7. ATORVASTATIN [Suspect]
     Indication: HYPERTRIGLYCERIDAEMIA
     Route: 048
     Dates: end: 20100816
  8. GAVISCON [Concomitant]
     Route: 048
  9. TETRAZEPAM [Concomitant]
     Route: 048
  10. ESOMEPRAZOLE [Concomitant]
     Route: 048
  11. MACROGOL [Concomitant]
     Route: 048
  12. PREGABALIN [Concomitant]
     Route: 048
  13. PARACETAMOL [Concomitant]
     Route: 048
  14. ALLOPURINOL [Concomitant]
     Route: 048

REACTIONS (1)
  - PANCREATITIS ACUTE [None]
